FAERS Safety Report 13379053 (Version 2)
Quarter: 2019Q4

REPORT INFORMATION
  Report Type: Spontaneous
  Country: PT (occurrence: PT)
  Receive Date: 20170328
  Receipt Date: 20191209
  Transmission Date: 20200122
  Serious: Yes (Other)
  Sender: FDA-Public Use
  Company Number: PT-BAYER-2017-052635

PATIENT
  Age: 52 Year
  Sex: Female

DRUGS (1)
  1. INTERFERON BETA - 1B [Suspect]
     Active Substance: INTERFERON BETA-1B
     Indication: RELAPSING-REMITTING MULTIPLE SCLEROSIS
     Dosage: UNK
     Route: 065
     Dates: start: 2000

REACTIONS (3)
  - Cholestasis [Recovered/Resolved]
  - Hepatitis cholestatic [Recovered/Resolved]
  - Autoimmune hepatitis [Recovered/Resolved]

NARRATIVE: CASE EVENT DATE: 2007
